FAERS Safety Report 9115785 (Version 1)
Quarter: 2013Q1

REPORT INFORMATION
  Report Type: Spontaneous
  Country: CN (occurrence: CN)
  Receive Date: 20130224
  Receipt Date: 20130224
  Transmission Date: 20140127
  Serious: Yes (Other)
  Sender: FDA-Public Use
  Company Number: PHHY2012CN127637

PATIENT
  Age: 5 Year
  Sex: Male
  Weight: 18 kg

DRUGS (2)
  1. SANDIMMUNE NEORAL [Suspect]
     Indication: NEPHROTIC SYNDROME
     Dosage: 50 MG, BID
     Route: 048
     Dates: start: 20081224, end: 20090104
  2. PREDNISONE ACETATE [Suspect]

REACTIONS (7)
  - Hypertensive encephalopathy [Recovering/Resolving]
  - Trismus [Recovering/Resolving]
  - Musculoskeletal stiffness [Recovering/Resolving]
  - Blood pressure increased [Recovering/Resolving]
  - Headache [Recovering/Resolving]
  - Eye movement disorder [Recovering/Resolving]
  - Loss of consciousness [Recovering/Resolving]
